FAERS Safety Report 16117222 (Version 3)
Quarter: 2019Q2

REPORT INFORMATION
  Report Type: Report from Study
  Country: US (occurrence: US)
  Receive Date: 20190326
  Receipt Date: 20190402
  Transmission Date: 20190711
  Serious: Yes (Death, Life-Threatening, Hospitalization)
  Sender: FDA-Public Use
  Company Number: US-ROCHE-2239237

PATIENT
  Age: 69 Year
  Sex: Male
  Weight: 68.1 kg

DRUGS (23)
  1. DAPSONE. [Concomitant]
     Active Substance: DAPSONE
     Route: 065
  2. PREDNISONE. [Concomitant]
     Active Substance: PREDNISONE
     Dosage: THEN 12.5MG DAILY STARTING 2/17 ONWARD
     Route: 065
  3. PIRFENIDONE. [Suspect]
     Active Substance: PIRFENIDONE
     Route: 048
     Dates: start: 20180417, end: 20190304
  4. AMLODIPINE [Concomitant]
     Active Substance: AMLODIPINE BESYLATE
     Route: 065
  5. AZITHROMYCIN ANHYDROUS. [Concomitant]
     Active Substance: AZITHROMYCIN ANHYDROUS
     Route: 065
  6. CALCIUM CARBONATE. [Concomitant]
     Active Substance: CALCIUM CARBONATE
     Route: 065
  7. CHOLECALCIFEROL [Concomitant]
     Active Substance: CHOLECALCIFEROL
  8. OMEPRAZOLE. [Concomitant]
     Active Substance: OMEPRAZOLE
     Route: 065
  9. CEFTAZIDIME. [Concomitant]
     Active Substance: CEFTAZIDIME
  10. MEROPENEM. [Concomitant]
     Active Substance: MEROPENEM
  11. ACETAMINOPHEN. [Concomitant]
     Active Substance: ACETAMINOPHEN
     Indication: PAIN
     Dosage: PRN
     Route: 065
  12. AMOXICILLIN. [Concomitant]
     Active Substance: AMOXICILLIN
     Dosage: 4 CAPSULES PRIOR TO PROCEDURE
     Route: 065
  13. FERROUS SULFATE. [Concomitant]
     Active Substance: FERROUS SULFATE
     Route: 065
  14. PIRFENIDONE. [Suspect]
     Active Substance: PIRFENIDONE
     Indication: COMPLICATIONS OF TRANSPLANTED LUNG
     Route: 065
     Dates: start: 20190227, end: 20190304
  15. ALBUTEROL. [Concomitant]
     Active Substance: ALBUTEROL
     Indication: DYSPNOEA
     Route: 065
  16. MYCOPHENOLATE [Concomitant]
     Active Substance: MYCOPHENOLIC ACID
     Route: 065
  17. TRAZODONE [Concomitant]
     Active Substance: TRAZODONE HYDROCHLORIDE
     Dosage: NIGHTLY
     Route: 065
  18. MAGNESIUM OXIDE. [Concomitant]
     Active Substance: MAGNESIUM OXIDE
     Route: 065
  19. METHYLPREDNISOLONE. [Concomitant]
     Active Substance: METHYLPREDNISOLONE
     Route: 042
  20. TACROLIMUS. [Concomitant]
     Active Substance: TACROLIMUS
     Route: 065
  21. PREDNISONE. [Concomitant]
     Active Substance: PREDNISONE
     Dosage: 30MG ON 2/13, 20MG 2/14-2/16
     Route: 065
  22. PIRFENIDONE. [Suspect]
     Active Substance: PIRFENIDONE
     Indication: COMPLICATIONS OF TRANSPLANTED LUNG
     Dosage: RECEIVE PIRFENIDONE FOR 52 WEEKS, TITRATED TO 2403 MG/DAY (3 CAPSULES, 3 TIMES DAILY)
     Route: 048
     Dates: start: 20180407, end: 20190319
  23. MORPHINE [Concomitant]
     Active Substance: MORPHINE
     Dosage: EVERY 3 HOURS AS NEEDED FOR PAIN (SOB)
     Route: 065

REACTIONS (14)
  - Sepsis [Not Recovered/Not Resolved]
  - Pneumonia pseudomonal [Unknown]
  - Death [Fatal]
  - Pneumonia [Recovering/Resolving]
  - Leukopenia [Unknown]
  - Pneumonia [Recovered/Resolved]
  - Acute kidney injury [Unknown]
  - Respiratory failure [Unknown]
  - Renal failure [Not Recovered/Not Resolved]
  - Acute respiratory failure [Unknown]
  - Cytomegalovirus viraemia [Recovered/Resolved]
  - Abdominal pain upper [Recovered/Resolved]
  - Hypotension [Not Recovered/Not Resolved]
  - Rhinovirus infection [Unknown]

NARRATIVE: CASE EVENT DATE: 20180604
